FAERS Safety Report 13564394 (Version 1)
Quarter: 2017Q2

REPORT INFORMATION
  Report Type: Report from Study
  Country: KR (occurrence: KR)
  Receive Date: 20170519
  Receipt Date: 20170519
  Transmission Date: 20170830
  Serious: No
  Sender: FDA-Public Use
  Company Number: KR-B.I. PHARMACEUTICALS,INC./RIDGEFIELD-2017-BI-027326

PATIENT
  Age: 59 Year
  Sex: Male
  Weight: 75 kg

DRUGS (11)
  1. JARDIANCE [Suspect]
     Active Substance: EMPAGLIFLOZIN
     Indication: TYPE 2 DIABETES MELLITUS
     Route: 048
     Dates: start: 20161228, end: 20170509
  2. VASTINAN [Concomitant]
     Indication: PRODUCT USED FOR UNKNOWN INDICATION
     Route: 065
     Dates: start: 20160907
  3. OLDECA [Concomitant]
     Indication: HYPERTENSION
     Route: 065
     Dates: start: 20161228
  4. DUONON [Concomitant]
     Indication: HYPERLIPIDAEMIA
     Dosage: STRENGTH: 10/10MG
     Route: 065
     Dates: start: 20160928
  5. HERBEN [Concomitant]
     Indication: ANGINA PECTORIS
     Dosage: SR- SUSTAINED RELEASE
     Route: 065
     Dates: start: 20160907
  6. ISOKET RETARD [Concomitant]
     Indication: PRODUCT USED FOR UNKNOWN INDICATION
     Route: 065
     Dates: start: 20160907
  7. STILLEN [Concomitant]
     Indication: PROPHYLAXIS
     Route: 065
     Dates: start: 20160907
  8. GLUPA [Concomitant]
     Active Substance: METFORMIN HYDROCHLORIDE
     Indication: DIABETES MELLITUS
     Route: 065
     Dates: start: 20161228
  9. JARDIANCE [Suspect]
     Active Substance: EMPAGLIFLOZIN
     Route: 065
  10. ASPIRIN. [Concomitant]
     Active Substance: ASPIRIN
     Indication: PROPHYLAXIS
     Route: 065
     Dates: start: 20160907
  11. SIGMART [Concomitant]
     Active Substance: NICORANDIL
     Indication: ANGINA PECTORIS
     Route: 065
     Dates: start: 20160928

REACTIONS (1)
  - Pollakiuria [Not Recovered/Not Resolved]

NARRATIVE: CASE EVENT DATE: 20170510
